FAERS Safety Report 17329429 (Version 8)
Quarter: 2022Q2

REPORT INFORMATION
  Report Type: Report from Study
  Country: US (occurrence: US)
  Receive Date: 20200127
  Receipt Date: 20220412
  Transmission Date: 20220721
  Serious: Yes (Life-Threatening, Hospitalization)
  Sender: FDA-Public Use
  Company Number: US-GILEAD-2020-0448249

PATIENT
  Age: 48 Year
  Sex: Male
  Weight: 77 kg

DRUGS (108)
  1. AXICABTAGENE CILOLEUCEL [Suspect]
     Active Substance: AXICABTAGENE CILOLEUCEL
     Indication: Non-Hodgkin^s lymphoma refractory
     Dosage: 1 DOSAGE FORM
     Route: 042
     Dates: start: 20200108, end: 20200108
  2. MESNA [Suspect]
     Active Substance: MESNA
     Indication: Bone marrow conditioning regimen
     Dosage: 125
     Route: 042
     Dates: start: 20200103, end: 20200105
  3. CYCLOPHOSPHAMIDE [Suspect]
     Active Substance: CYCLOPHOSPHAMIDE
     Indication: Bone marrow conditioning regimen
     Dosage: 500
     Route: 042
     Dates: start: 20200103, end: 20200105
  4. FLUDARABINE [Suspect]
     Active Substance: FLUDARABINE PHOSPHATE
     Indication: Bone marrow conditioning regimen
     Dosage: 30
     Route: 042
     Dates: start: 20200103, end: 20200105
  5. MIDAZOLAM [Concomitant]
     Active Substance: MIDAZOLAM
     Dosage: 4,MG,DAILY
     Route: 041
     Dates: start: 20200102, end: 20200102
  6. MIDAZOLAM [Concomitant]
     Active Substance: MIDAZOLAM
     Dosage: 1-2,OTHER,OTHER
     Route: 041
     Dates: start: 20200124, end: 20200125
  7. LIDOCAINE HCL AND EPINEPHRINE [EPINEPHRINE;LIDOCAINE HYDROCHLORIDE] [Concomitant]
     Dosage: 10,ML,DAILY
     Route: 050
     Dates: start: 20200102, end: 20200102
  8. LIDOCAINE [Concomitant]
     Active Substance: LIDOCAINE
     Dosage: 5,ML,DAILY
     Route: 050
     Dates: start: 20200102, end: 20200102
  9. FENTANYL [Concomitant]
     Active Substance: FENTANYL
     Dosage: 150,UG,DAILY
     Route: 041
     Dates: start: 20200102, end: 20200102
  10. PALONOSETRON [Concomitant]
     Active Substance: PALONOSETRON
     Dosage: 0.25,MG,DAILY
     Route: 041
     Dates: start: 20200103, end: 20200103
  11. PEGFILGRASTIM [Concomitant]
     Active Substance: PEGFILGRASTIM
     Dosage: 6,MG,DAILY
     Route: 058
     Dates: start: 20200105, end: 20200105
  12. ACYCLOVIR [Concomitant]
     Active Substance: ACYCLOVIR
     Dosage: 400,MG,THREE TIMES DAILY
     Route: 048
     Dates: start: 20200107
  13. ACYCLOVIR [Concomitant]
     Active Substance: ACYCLOVIR
     Dosage: 200,MG,DAILY
     Route: 041
     Dates: start: 20200121, end: 20200121
  14. ACYCLOVIR [Concomitant]
     Active Substance: ACYCLOVIR
     Dosage: 710,MG,OTHER
     Route: 041
     Dates: start: 20200124, end: 20200125
  15. SULFAMETHOXAZOLE AND TRIMETHOPRIM [Concomitant]
     Active Substance: SULFAMETHOXAZOLE\TRIMETHOPRIM
     Dosage: 80,MG,DAILY
     Route: 048
     Dates: start: 20200107
  16. LEVOFLOXACIN [Concomitant]
     Active Substance: LEVOFLOXACIN
     Dosage: 500,MG,DAILY
     Route: 048
     Dates: start: 20200107, end: 20200112
  17. LEVOFLOXACIN [Concomitant]
     Active Substance: LEVOFLOXACIN
     Dosage: 750,MG,DAILY
     Route: 048
     Dates: start: 20200119, end: 20200122
  18. LEVOFLOXACIN [Concomitant]
     Active Substance: LEVOFLOXACIN
     Dosage: 750,MG,OTHER, PREMIX
     Route: 041
     Dates: start: 20200121, end: 20200122
  19. LEVETIRACETAM [Concomitant]
     Active Substance: LEVETIRACETAM
     Dosage: 750,MG,EVERY 12 HOURS
     Route: 048
     Dates: start: 20200107, end: 20200123
  20. LEVETIRACETAM [Concomitant]
     Active Substance: LEVETIRACETAM
     Dosage: 1000,MG,OTHER
     Route: 041
     Dates: start: 20200124, end: 20200124
  21. LEVETIRACETAM [Concomitant]
     Active Substance: LEVETIRACETAM
     Dosage: 2000,MG,TWICE DAILY
     Route: 041
     Dates: start: 20200125, end: 20200128
  22. LEVETIRACETAM [Concomitant]
     Active Substance: LEVETIRACETAM
     Dosage: 500,MG,DAILY
     Route: 041
     Dates: start: 20200125, end: 20200125
  23. LEVETIRACETAM [Concomitant]
     Active Substance: LEVETIRACETAM
     Dosage: 2000,MG,TWICE DAILY
     Route: 048
     Dates: start: 20200128, end: 20200201
  24. LEVETIRACETAM [Concomitant]
     Active Substance: LEVETIRACETAM
     Dosage: 1500,MG,AS NECESSARY
     Route: 041
     Dates: start: 20200124, end: 20200125
  25. MAGNESIUM OXIDE [Concomitant]
     Active Substance: MAGNESIUM OXIDE
     Dosage: 400-800,MG,AS NECESSARY
     Route: 048
     Dates: start: 20200108, end: 20200121
  26. MAGNESIUM OXIDE [Concomitant]
     Active Substance: MAGNESIUM OXIDE
     Dosage: 400,MG,OTHER
     Route: 048
     Dates: start: 20200123, end: 20200123
  27. LORATADINE [Concomitant]
     Active Substance: LORATADINE
     Dosage: 10,MG,DAILY
     Route: 048
     Dates: start: 20200108, end: 20200113
  28. ENOXAPARIN [Concomitant]
     Active Substance: ENOXAPARIN
     Dosage: 40,MG,DAILY
     Route: 058
     Dates: start: 20200108, end: 20200126
  29. ENOXAPARIN [Concomitant]
     Active Substance: ENOXAPARIN
     Dosage: 80,MG,EVERY 12 HOURS
     Route: 041
     Dates: start: 20200130, end: 20200309
  30. CHLORHEXIDINE [Concomitant]
     Active Substance: CHLORHEXIDINE
     Dosage: 4% EXTERNAL LIQUID. 1,OTHER,AS NECESSARY
     Route: 061
     Dates: start: 20200108, end: 20200207
  31. ALLOPURINOL [Concomitant]
     Active Substance: ALLOPURINOL
     Dosage: 300,MG,DAILY
     Route: 048
     Dates: start: 20200108, end: 20200121
  32. DIPHENHYDRAMINE [Concomitant]
     Active Substance: DIPHENHYDRAMINE
     Dosage: 25,MG,OTHER
     Route: 048
     Dates: start: 20200108, end: 20200108
  33. DIPHENHYDRAMINE [Concomitant]
     Active Substance: DIPHENHYDRAMINE
     Dosage: 25,MG,DAILY
     Route: 058
     Dates: start: 20200115, end: 20200115
  34. DIPHENHYDRAMINE [Concomitant]
     Active Substance: DIPHENHYDRAMINE
     Dosage: 25,MG,DAILY
     Route: 048
     Dates: start: 20200127, end: 20200127
  35. ACETAMINOPHEN [Concomitant]
     Active Substance: ACETAMINOPHEN
     Dosage: 650,MG,OTHER
     Route: 048
     Dates: start: 20200108, end: 20200108
  36. ACETAMINOPHEN [Concomitant]
     Active Substance: ACETAMINOPHEN
     Dosage: 1000,MG,DAILY
     Route: 041
     Dates: start: 20200114, end: 20200114
  37. ACETAMINOPHEN [Concomitant]
     Active Substance: ACETAMINOPHEN
     Dosage: 650,MG,TWICE DAILY
     Route: 048
     Dates: start: 20200114, end: 20200115
  38. ACETAMINOPHEN [Concomitant]
     Active Substance: ACETAMINOPHEN
     Dosage: 325,MG,DAILY
     Route: 048
     Dates: start: 20200115, end: 20200115
  39. ACETAMINOPHEN [Concomitant]
     Active Substance: ACETAMINOPHEN
     Dosage: 1000,MG,OTHER
     Route: 041
     Dates: start: 20200115, end: 20200117
  40. ACETAMINOPHEN [Concomitant]
     Active Substance: ACETAMINOPHEN
     Dosage: 650,MG,AS NECESSARY
     Route: 048
     Dates: start: 20200121, end: 20200129
  41. ACETAMINOPHEN [Concomitant]
     Active Substance: ACETAMINOPHEN
     Dosage: 650,MG,DAILY
     Route: 048
     Dates: start: 20200127, end: 20200127
  42. ACETAMINOPHEN [Concomitant]
     Active Substance: ACETAMINOPHEN
     Dosage: 650,MG,AS NECESSARY
     Route: 054
     Dates: start: 20200127, end: 20200127
  43. PROCHLORPERAZINE [Concomitant]
     Active Substance: PROCHLORPERAZINE
     Dosage: 10,MG,AS NECESSARY
     Route: 048
     Dates: start: 20200114, end: 20200120
  44. PROCHLORPERAZINE EDISYLATE [Concomitant]
     Active Substance: PROCHLORPERAZINE EDISYLATE
     Dosage: 10,MG,AS NECESSARY
     Route: 041
     Dates: start: 20200114, end: 20200121
  45. PROCHLORPERAZINE EDISYLATE [Concomitant]
     Active Substance: PROCHLORPERAZINE EDISYLATE
     Dosage: 5,MG,OTHER
     Route: 041
     Dates: start: 20200125, end: 20200125
  46. SODIUM CHLORIDE [Concomitant]
     Active Substance: SODIUM CHLORIDE
     Dosage: 500,ML,OTHER, BOLUS
     Route: 041
     Dates: start: 20200114, end: 20200114
  47. SODIUM CHLORIDE [Concomitant]
     Active Substance: SODIUM CHLORIDE
     Dosage: 1000,ML,AS NECESSARY, BOLUS
     Route: 041
     Dates: start: 20200115, end: 20200115
  48. SODIUM CHLORIDE [Concomitant]
     Active Substance: SODIUM CHLORIDE
     Dosage: 500,ML,OTHER, BOLUS
     Route: 041
     Dates: start: 20200120, end: 20200120
  49. SODIUM CHLORIDE [Concomitant]
     Active Substance: SODIUM CHLORIDE
     Dosage: 1000,ML,OTHER, BOLUS
     Route: 041
     Dates: start: 20200121, end: 20200121
  50. SODIUM CHLORIDE [Concomitant]
     Active Substance: SODIUM CHLORIDE
     Dosage: 500,ML,OTHER, BOLUS
     Route: 041
     Dates: start: 20200123, end: 20200123
  51. SODIUM CHLORIDE [Concomitant]
     Active Substance: SODIUM CHLORIDE
     Dosage: 250,ML,AS NECESSARY, BOLUS
     Route: 041
     Dates: start: 20200124, end: 20200125
  52. SODIUM CHLORIDE [Concomitant]
     Active Substance: SODIUM CHLORIDE
     Dosage: 1000,ML,OTHER, BOLUS
     Route: 041
     Dates: start: 20200124, end: 20200124
  53. SODIUM CHLORIDE [Concomitant]
     Active Substance: SODIUM CHLORIDE
     Dosage: 1000,ML,DAILY, BOLUS
     Route: 041
     Dates: start: 20200127, end: 20200127
  54. SODIUM CHLORIDE [Concomitant]
     Active Substance: SODIUM CHLORIDE
     Dosage: 1000,ML,DAILY, BOLUS
     Route: 041
     Dates: start: 20200203, end: 20200204
  55. SODIUM CHLORIDE [Concomitant]
     Active Substance: SODIUM CHLORIDE
     Dosage: 10,OTHER,OTHER
     Route: 041
     Dates: start: 20200108, end: 20200108
  56. SODIUM CHLORIDE [Concomitant]
     Active Substance: SODIUM CHLORIDE
     Dosage: 500,OTHER,TWICE DAILY
     Route: 041
     Dates: start: 20200103, end: 20200105
  57. SODIUM CHLORIDE [Concomitant]
     Active Substance: SODIUM CHLORIDE
     Dosage: 500,ML,DAILY, BOLUS
     Route: 041
     Dates: start: 20200127, end: 20200127
  58. CALCIUM GLUCONATE [Concomitant]
     Active Substance: CALCIUM GLUCONATE
     Dosage: 2,G,DAILY
     Route: 041
     Dates: start: 20200115, end: 20200115
  59. CALCIUM GLUCONATE [Concomitant]
     Active Substance: CALCIUM GLUCONATE
     Dosage: 2,G,DAILY
     Route: 041
     Dates: start: 20200123, end: 20200124
  60. CALCIUM GLUCONATE [Concomitant]
     Active Substance: CALCIUM GLUCONATE
     Dosage: 2,G,DAILY
     Route: 041
     Dates: start: 20200130, end: 20200130
  61. OXYGEN [Concomitant]
     Active Substance: OXYGEN
     Dosage: 1-4,L/MIN,AS NECESSARY
     Dates: start: 20200115, end: 20200117
  62. TOCILIZUMAB [Concomitant]
     Active Substance: TOCILIZUMAB
     Dosage: 586,MG,OTHER
     Route: 041
     Dates: start: 20200115, end: 20200115
  63. TOCILIZUMAB [Concomitant]
     Active Substance: TOCILIZUMAB
     Dosage: 606,MG,OTHER
     Route: 041
     Dates: start: 20200116, end: 20200116
  64. TOCILIZUMAB [Concomitant]
     Active Substance: TOCILIZUMAB
     Dosage: 606,MG,OTHER
     Route: 041
     Dates: start: 20200117, end: 20200117
  65. DEXAMETHASONE [Concomitant]
     Active Substance: DEXAMETHASONE
     Dosage: 10,MG,OTHER
     Route: 041
     Dates: start: 20200115, end: 20200115
  66. DEXAMETHASONE [Concomitant]
     Active Substance: DEXAMETHASONE
     Dosage: 10,MG,OTHER
     Route: 041
     Dates: start: 20200116, end: 20200116
  67. DEXAMETHASONE [Concomitant]
     Active Substance: DEXAMETHASONE
     Dosage: 10,MG,OTHER
     Route: 041
     Dates: start: 20200117, end: 20200117
  68. DEXAMETHASONE [Concomitant]
     Active Substance: DEXAMETHASONE
     Dosage: 10,MG,DAILY
     Route: 041
     Dates: start: 20200124, end: 20200124
  69. CEFTAZIDIME [Concomitant]
     Active Substance: CEFTAZIDIME
     Dosage: 2,G,THREE TIMES DAILY
     Route: 041
     Dates: start: 20200116, end: 20200119
  70. LACTATED RINGERS SOLUTION [Concomitant]
     Active Substance: CALCIUM CHLORIDE\POTASSIUM CHLORIDE\SODIUM CHLORIDE\SODIUM LACTATE
     Dosage: 100,OTHER,AS NECESSARY
     Dates: start: 20200115, end: 20200118
  71. LACTATED RINGERS SOLUTION [Concomitant]
     Active Substance: CALCIUM CHLORIDE\POTASSIUM CHLORIDE\SODIUM CHLORIDE\SODIUM LACTATE
     Dosage: 1000,ML,DAILY, BOLUS
     Route: 041
     Dates: start: 20200116, end: 20200116
  72. LACTATED RINGERS SOLUTION [Concomitant]
     Active Substance: CALCIUM CHLORIDE\POTASSIUM CHLORIDE\SODIUM CHLORIDE\SODIUM LACTATE
     Dosage: 1000,ML,OTHER, BOLUS
     Route: 041
     Dates: start: 20200131, end: 20200131
  73. METRONIDAZOLE [Concomitant]
     Active Substance: METRONIDAZOLE
     Dosage: 500,MG,OTHER
     Route: 041
     Dates: start: 20200116, end: 20200120
  74. METRONIDAZOLE [Concomitant]
     Active Substance: METRONIDAZOLE
     Dosage: 500,MG,OTHER
     Route: 048
     Dates: start: 20200120, end: 20200121
  75. LORAZEPAM [Concomitant]
     Active Substance: LORAZEPAM
     Dosage: 0.5-1,MG,AS NECESSARY
     Route: 041
     Dates: start: 20200116, end: 20200128
  76. LORAZEPAM [Concomitant]
     Active Substance: LORAZEPAM
     Dosage: 4,MG,DAILY
     Route: 041
     Dates: start: 20200124, end: 20200124
  77. LORAZEPAM [Concomitant]
     Active Substance: LORAZEPAM
     Dosage: 2,MG,AS NECESSARY
     Route: 041
     Dates: start: 20200124, end: 20200201
  78. LORAZEPAM [Concomitant]
     Active Substance: LORAZEPAM
     Dosage: 0.5,MG,DAILY
     Route: 048
     Dates: start: 20200126, end: 20200126
  79. LORAZEPAM [Concomitant]
     Active Substance: LORAZEPAM
     Dosage: 1,MG,AS NECESSARY
     Route: 048
     Dates: start: 20200207
  80. LOPERAMIDE [Concomitant]
     Active Substance: LOPERAMIDE
     Dosage: 4,MG,AS NECESSARY
     Route: 048
     Dates: start: 20200116, end: 20200205
  81. POTASSIUM;SODIUM PHOSPHATE [Concomitant]
     Dosage: 1,OTHER,FOUR TIMES DAILY
     Route: 048
     Dates: start: 20200117, end: 20200118
  82. MAGNESIUM SULFATE [Concomitant]
     Active Substance: MAGNESIUM SULFATE
     Dosage: 2,G,AS NECESSARY
     Route: 041
     Dates: start: 20200117, end: 20200208
  83. MAGNESIUM SULFATE [Concomitant]
     Active Substance: MAGNESIUM SULFATE
     Dosage: 1,OTHER,OTHER,, IN WATER
     Route: 041
     Dates: start: 20200129, end: 20200202
  84. GUAIFENESIN [Concomitant]
     Active Substance: GUAIFENESIN
     Dosage: 400,MG,OTHER
     Route: 048
     Dates: start: 20200117, end: 20200118
  85. FUROSEMIDE [Concomitant]
     Active Substance: FUROSEMIDE
     Dosage: 20,MG,OTHER
     Route: 041
     Dates: start: 20200117, end: 20200117
  86. FUROSEMIDE [Concomitant]
     Active Substance: FUROSEMIDE
     Dosage: 20,MG,OTHER
     Route: 041
     Dates: start: 20200118, end: 20200118
  87. SIMETHICONE (DIMETHICONE) [Concomitant]
     Active Substance: DIMETHICONE
     Dosage: 80,MG,OTHER
     Route: 048
     Dates: start: 20200118, end: 20200123
  88. DEXTROMETHORPHAN\GUAIFENESIN [Concomitant]
     Active Substance: DEXTROMETHORPHAN\GUAIFENESIN
     Dosage: 10,ML,OTHER
     Route: 048
     Dates: start: 20200118, end: 20200121
  89. CARBOXYMETHYLCELLULOSE [Concomitant]
     Active Substance: CARBOXYMETHYLCELLULOSE
     Dosage: 2,OTHER,AS NECESSARY
     Route: 050
     Dates: start: 20200118, end: 20200118
  90. POTASSIUM CHLORIDE [Concomitant]
     Active Substance: POTASSIUM CHLORIDE
     Dosage: 20,OTHER,AS NECESSARY
     Route: 041
     Dates: start: 20200120, end: 20200131
  91. ONDANSETRON [Concomitant]
     Active Substance: ONDANSETRON
     Dosage: 8,MG,AS NECESSARY
     Route: 041
     Dates: start: 20200120, end: 20200122
  92. FAMOTIDINE [Concomitant]
     Active Substance: FAMOTIDINE
     Dosage: 20,MG,TWICE DAILY
     Route: 048
     Dates: start: 20200120, end: 20200128
  93. FAMOTIDINE [Concomitant]
     Active Substance: FAMOTIDINE
     Dosage: 20,MG,TWICE DAILY
     Route: 041
     Dates: start: 20200124, end: 20200128
  94. FAMOTIDINE [Concomitant]
     Active Substance: FAMOTIDINE
     Dosage: 20,MG,TWICE DAILY
     Route: 048
     Dates: start: 20200128, end: 20200202
  95. MECLIZINE [Concomitant]
     Active Substance: MECLIZINE HYDROCHLORIDE
     Dosage: 25,MG,THREE TIMES DAILY
     Route: 048
     Dates: start: 20200121, end: 20200123
  96. MECLIZINE [Concomitant]
     Active Substance: MECLIZINE HYDROCHLORIDE
     Dosage: 25,MG,AS NECESSARY
     Route: 048
     Dates: start: 20200125, end: 20200128
  97. SCOPOLAMINE [Concomitant]
     Active Substance: SCOPOLAMINE
     Dosage: 1,OTHER,OTHER
     Route: 062
     Dates: start: 20200122, end: 20200128
  98. OXYCODONE [Concomitant]
     Active Substance: OXYCODONE
     Dosage: 2.5,MG,OTHER
     Route: 048
     Dates: start: 20200122, end: 20200122
  99. OXYCODONE [Concomitant]
     Active Substance: OXYCODONE
     Dosage: 5,MG,OTHER
     Route: 048
     Dates: start: 20200123, end: 20200123
  100. DEXTROSE\SODIUM CHLORIDE [Concomitant]
     Active Substance: DEXTROSE\SODIUM CHLORIDE
     Dosage: 125,OTHER,OTHER (D5-NS)
     Route: 041
     Dates: start: 20200122, end: 20200122
  101. DEXTROSE\SODIUM CHLORIDE [Concomitant]
     Active Substance: DEXTROSE\SODIUM CHLORIDE
     Dosage: 150,OTHER,OTHER (D5-NS)
     Route: 041
     Dates: start: 20200125, end: 20200126
  102. DEXTROSE\SODIUM CHLORIDE [Concomitant]
     Active Substance: DEXTROSE\SODIUM CHLORIDE
     Dosage: 75,OTHER,OTHER (D5-NS)
     Route: 041
     Dates: start: 20200126, end: 20200126
  103. METOCLOPRAMIDE HYDROCHLORIDE [Concomitant]
     Active Substance: METOCLOPRAMIDE HYDROCHLORIDE
     Dosage: 10,MG,OTHER
     Route: 048
     Dates: start: 20200123, end: 20200123
  104. METHYL SALICYLATE [Concomitant]
     Active Substance: METHYL SALICYLATE
     Dosage: 1,OTHER,AS NECESSARY
     Route: 061
     Dates: start: 20200123, end: 20200123
  105. CAFFEINE [Concomitant]
     Active Substance: CAFFEINE
     Dosage: 200,MG,AS NECESSARY
     Route: 048
     Dates: start: 20200123, end: 20200123
  106. OMEPRAZOLE [Concomitant]
     Active Substance: OMEPRAZOLE
     Dosage: 20,MG,DAILY
     Route: 048
     Dates: start: 20200317
  107. BACTRIM [Concomitant]
     Active Substance: SULFAMETHOXAZOLE\TRIMETHOPRIM
     Dosage: 400-80,MG,EVERY 12 HOURS
     Route: 048
     Dates: start: 20211109, end: 20211112
  108. INFLUENZA VIRUS VACCINE QUADRIVALENT TYPE A+B [Concomitant]
     Active Substance: INFLUENZA VIRUS VACCINE QUADRIVALENT TYPE A+B
     Dosage: 0.5,ML,OTHER
     Route: 030
     Dates: start: 20211112, end: 20211112

REACTIONS (2)
  - Seizure [Recovered/Resolved]
  - Seizure [Recovered/Resolved]

NARRATIVE: CASE EVENT DATE: 20200124
